FAERS Safety Report 5598481-3 (Version None)
Quarter: 2008Q1

REPORT INFORMATION
  Report Type: 
  Country: None (occurrence: None)
  Receive Date: 20080122
  Receipt Date: 20080115
  Transmission Date: 20080703
  Serious: Yes (Other)
  Sender: FDA-Public Use
  Company Number: US-MERCK-0801USA03220

PATIENT
  Sex: Male

DRUGS (1)
  1. FOSAMAX [Suspect]
     Route: 048

REACTIONS (5)
  - DEAFNESS [None]
  - DYSPHAGIA [None]
  - OESOPHAGEAL ULCER [None]
  - SPEECH DISORDER [None]
  - WEIGHT DECREASED [None]
